FAERS Safety Report 9012231 (Version 2)
Quarter: 2013Q1

REPORT INFORMATION
  Report Type: Report from Study
  Country: US (occurrence: US)
  Receive Date: 20130114
  Receipt Date: 20130122
  Transmission Date: 20140127
  Serious: Yes (Hospitalization)
  Sender: FDA-Public Use
  Company Number: US-ACTELION-A-NJ2013-77312

PATIENT
  Age: 59 Year
  Sex: Male

DRUGS (1)
  1. VELETRI [Suspect]
     Indication: PORTOPULMONARY HYPERTENSION
     Dosage: 19.41 NG/KG, PER MIN
     Route: 041
     Dates: start: 20121026

REACTIONS (1)
  - Hepatorenal failure [Unknown]
